FAERS Safety Report 19138047 (Version 9)
Quarter: 2021Q4

REPORT INFORMATION
  Report Type: Report from Study
  Country: CA (occurrence: None)
  Receive Date: 20210415
  Receipt Date: 20211111
  Transmission Date: 20220304
  Serious: Yes (Hospitalization)
  Sender: FDA-Public Use
  Company Number: CA-ROCHE-2808024

PATIENT
  Age: 68 Year
  Sex: Female

DRUGS (30)
  1. COBIMETINIB [Suspect]
     Active Substance: COBIMETINIB
     Indication: Non-small cell lung cancer
     Dosage: ON 04/APR/2021, SHE RECEIVED MOST RECENT DOSE OF COBIMETINIB (40 MG) PRIOR TO ONSET OF SERIOUS ADVER
     Route: 048
     Dates: start: 20210317
  2. VEMURAFENIB [Suspect]
     Active Substance: VEMURAFENIB
     Indication: Non-small cell lung cancer
     Dosage: ON 04/APR/2021, SHE RECEIVED MOST RECENT DOSE OF VEMURAFENIB (720 MG) PRIOR TO ONSET OF SERIOUS ADVE
     Route: 048
     Dates: start: 20210317
  3. CRESTOR [Concomitant]
     Active Substance: ROSUVASTATIN CALCIUM
     Indication: Dyslipidaemia
     Route: 048
     Dates: start: 200606
  4. ENOXAPARIN [Concomitant]
     Active Substance: ENOXAPARIN
     Route: 058
     Dates: start: 20210407
  5. FLUTICASONE PROPIONATE [Concomitant]
     Active Substance: FLUTICASONE PROPIONATE
     Indication: Asthma
     Dates: start: 200105
  6. PERINDOPRIL [Concomitant]
     Active Substance: PERINDOPRIL
     Indication: Hypertension
     Route: 048
     Dates: start: 200605
  7. PERINDOPRIL [Concomitant]
     Active Substance: PERINDOPRIL
     Route: 048
     Dates: start: 2006
  8. ALBUTEROL [Concomitant]
     Active Substance: ALBUTEROL
     Indication: Asthma
     Route: 055
     Dates: start: 200101
  9. SENNA [Concomitant]
     Active Substance: SENNA LEAF\SENNOSIDES\SENNOSIDES A AND B
     Indication: Constipation
     Route: 048
     Dates: start: 202012
  10. K-DUR [Concomitant]
     Active Substance: POTASSIUM CHLORIDE
     Dosage: 40 OTHER
     Route: 048
     Dates: start: 20210409
  11. TYLENOL [Concomitant]
     Active Substance: ACETAMINOPHEN
     Indication: Back pain
     Route: 048
     Dates: start: 202012, end: 20210329
  12. PANTOPRAZOLE [Concomitant]
     Active Substance: PANTOPRAZOLE
     Route: 048
     Dates: start: 20210409, end: 20210422
  13. PREGABALIN [Concomitant]
     Active Substance: PREGABALIN
     Route: 048
     Dates: start: 20210302
  14. VERAPAMIL [Concomitant]
     Active Substance: VERAPAMIL HYDROCHLORIDE
     Indication: Hypertension
     Route: 048
     Dates: start: 201605
  15. SEPTRA [Concomitant]
     Active Substance: SULFAMETHOXAZOLE\TRIMETHOPRIM
     Indication: Urinary tract infection
     Route: 048
     Dates: start: 20210526, end: 20210601
  16. ADVIL [Concomitant]
     Active Substance: IBUPROFEN
     Indication: Pyrexia
     Route: 048
     Dates: start: 20210405
  17. CODEINE [Concomitant]
     Active Substance: CODEINE
     Indication: Back pain
     Route: 048
     Dates: start: 20210331
  18. CODEINE [Concomitant]
     Active Substance: CODEINE
     Indication: Breast pain
  19. CODEINE [Concomitant]
     Active Substance: CODEINE
     Indication: Pain in extremity
  20. BENADRYL [Concomitant]
     Active Substance: DIPHENHYDRAMINE HYDROCHLORIDE
     Indication: Rash maculo-papular
     Route: 048
     Dates: start: 20210403
  21. ADENOSINE [Concomitant]
     Active Substance: ADENOSINE
     Route: 042
     Dates: start: 20210622, end: 20210622
  22. SEPTRA [Concomitant]
     Active Substance: SULFAMETHOXAZOLE\TRIMETHOPRIM
     Indication: Urinary tract infection
     Route: 048
     Dates: start: 20210526, end: 20210526
  23. COVID-19 VACCINE NOS [Concomitant]
     Active Substance: COVID-19 VACCINE NOS
     Route: 058
     Dates: start: 20210604
  24. METHYLPREDNISOLONE [Concomitant]
     Active Substance: METHYLPREDNISOLONE
     Dates: start: 20210408
  25. PREDNISONE [Concomitant]
     Active Substance: PREDNISONE
     Indication: Blood creatine phosphokinase increased
     Dates: start: 20210409, end: 20210413
  26. PREDNISONE [Concomitant]
     Active Substance: PREDNISONE
     Indication: Rash
     Dates: start: 20210419, end: 20210423
  27. PREDNISONE [Concomitant]
     Active Substance: PREDNISONE
     Dates: start: 20210505, end: 20210511
  28. PREDNISONE [Concomitant]
     Active Substance: PREDNISONE
     Dates: start: 20210424, end: 20210501
  29. PREDNISONE [Concomitant]
     Active Substance: PREDNISONE
     Dates: start: 20210502, end: 20210504
  30. PREDNISONE [Concomitant]
     Active Substance: PREDNISONE
     Dates: start: 20210414, end: 20210414

REACTIONS (5)
  - Fatigue [Recovering/Resolving]
  - Blood creatine phosphokinase increased [Recovered/Resolved]
  - Diarrhoea [Recovered/Resolved]
  - Pyrexia [Recovered/Resolved]
  - Rash maculo-papular [Recovered/Resolved]

NARRATIVE: CASE EVENT DATE: 20210320
